FAERS Safety Report 10544825 (Version 2)
Quarter: 2014Q4

REPORT INFORMATION
  Report Type: Report from Study
  Country: US (occurrence: US)
  Receive Date: 20141027
  Receipt Date: 20141027
  Transmission Date: 20150529
  Serious: Yes (Congenital Anomaly)
  Sender: FDA-Public Use
  Company Number: US-B.I. PHARMACEUTICALS,INC./RIDGEFIELD-1999-BP-00472

PATIENT
  Age: 0 Day
  Sex: Female
  Weight: 3.81 kg

DRUGS (4)
  1. VIRAMUNE [Suspect]
     Active Substance: NEVIRAPINE
     Indication: EXPOSURE DURING PREGNANCY
     Route: 064
     Dates: start: 19981030
  2. STAVUDINE. [Concomitant]
     Active Substance: STAVUDINE
     Indication: EXPOSURE DURING PREGNANCY
     Route: 065
     Dates: start: 19970106, end: 19981030
  3. NELFINAVIR [Concomitant]
     Active Substance: NELFINAVIR
     Indication: EXPOSURE DURING PREGNANCY
     Route: 065
     Dates: start: 19971024, end: 19981030
  4. COMBIVIR [Concomitant]
     Active Substance: LAMIVUDINE\ZIDOVUDINE
     Indication: EXPOSURE DURING PREGNANCY
     Route: 065
     Dates: start: 19981030

REACTIONS (3)
  - Hydronephrosis [Recovered/Resolved]
  - Cardiac murmur [Not Recovered/Not Resolved]
  - Ear malformation [Not Recovered/Not Resolved]

NARRATIVE: CASE EVENT DATE: 19990419
